FAERS Safety Report 6193372-1 (Version None)
Quarter: 2009Q2

REPORT INFORMATION
  Report Type: 
  Country: None (occurrence: None)
  Receive Date: 20090514
  Receipt Date: 20090514
  Transmission Date: 20091009
  Serious: Yes (Other)
  Sender: FDA-Public Use
  Company Number: None

PATIENT
  Sex: Male
  Weight: 99.7913 kg

DRUGS (1)
  1. STRATTERA [Suspect]
     Indication: ATTENTION DEFICIT/HYPERACTIVITY DISORDER
     Dosage: 60 MG DAILY PO
     Route: 048
     Dates: start: 20081120, end: 20090415

REACTIONS (11)
  - ABDOMINAL PAIN LOWER [None]
  - BACK PAIN [None]
  - CYSTITIS [None]
  - DIZZINESS [None]
  - DYSPAREUNIA [None]
  - EJACULATION DISORDER [None]
  - ERECTILE DYSFUNCTION [None]
  - HEADACHE [None]
  - PROSTATITIS [None]
  - SEXUALLY TRANSMITTED DISEASE [None]
  - URINARY TRACT INFECTION [None]
